FAERS Safety Report 7089279-8 (Version None)
Quarter: 2010Q4

REPORT INFORMATION
  Report Type: 
  Country: None (occurrence: None)
  Receive Date: 20101029
  Receipt Date: 20101018
  Transmission Date: 20110411
  Serious: Yes (Hospitalization, Other)
  Sender: FDA-Public Use
  Company Number: 020558

PATIENT
  Sex: Male
  Weight: 2.9 kg

DRUGS (5)
  1. KEPPRA [Suspect]
     Indication: EPILEPSY
     Dosage: SEE IMAGE
     Route: 064
     Dates: start: 20090505
  2. VALPROAT [Concomitant]
  3. FOLIC ACID [Concomitant]
  4. TAVOR /00273201/ [Concomitant]
  5. ERGENYL CHRONO [Concomitant]

REACTIONS (4)
  - CAESAREAN SECTION [None]
  - FOETAL DISTRESS SYNDROME [None]
  - MATERNAL DRUGS AFFECTING FOETUS [None]
  - RESPIRATORY DISORDER NEONATAL [None]
